FAERS Safety Report 5301825-0 (Version None)
Quarter: 2007Q2

REPORT INFORMATION
  Report Type: 
  Country: None (occurrence: None)
  Receive Date: 20070411
  Receipt Date: 20070402
  Transmission Date: 20071010
  Serious: Yes (Hospitalization)
  Sender: FDA-Public Use
  Company Number: 056-C5013-07030865

PATIENT
  Age: 85 Year
  Sex: Male
  Weight: 68 kg

DRUGS (5)
  1. CC-5013 (LENALIDOMIDE) (CAPSULES) [Suspect]
     Indication: MULTIPLE MYELOMA
     Dosage: DAILY, ORAL
     Route: 048
     Dates: start: 20070116, end: 20070126
  2. DEXAMETHASONE TAB [Suspect]
     Indication: MULTIPLE MYELOMA
     Dosage: DAILY, ORAL
     Route: 048
     Dates: start: 20061001, end: 20070121
  3. ARANESP [Suspect]
     Indication: ANAEMIA
     Dosage: 500 UG, SUBCUTANEOUS
     Route: 058
     Dates: start: 20070119, end: 20070119
  4. AMLOR (AMLODIPINE BESILATE) (5 MILLIGRAM, TABLETS) [Suspect]
     Indication: HYPERTENSION
     Dosage: DAILY, ORAL
     Route: 048
  5. DIGOXIN [Concomitant]

REACTIONS (6)
  - DEHYDRATION [None]
  - DIARRHOEA HAEMORRHAGIC [None]
  - DIVERTICULUM INTESTINAL [None]
  - HYPONATRAEMIA [None]
  - RENAL CYST [None]
  - SIGMOIDITIS [None]
